FAERS Safety Report 6288245-X (Version None)
Quarter: 2009Q3

REPORT INFORMATION
  Report Type: 
  Country: None (occurrence: None)
  Receive Date: 20090729
  Receipt Date: 20090720
  Transmission Date: 20100115
  Serious: Yes (Hospitalization)
  Sender: FDA-Public Use
  Company Number: DE-ASTRAZENECA-2009SE05483

PATIENT
  Age: 51 Year
  Sex: Female

DRUGS (5)
  1. SYMBICORT [Interacting]
     Indication: ASTHMA
     Dosage: SYMBICORT TURBOHALER 320/9
     Route: 055
     Dates: start: 20030101
  2. SPIRIVA [Interacting]
     Indication: ASTHMA
     Route: 055
     Dates: start: 20030101
  3. ALBUTEROL [Interacting]
     Indication: ASTHMA
     Route: 055
     Dates: start: 20030101
  4. THEOPHYLLIN RETARD-RATIOPHARM [Suspect]
     Indication: ASTHMA
     Route: 048
     Dates: start: 20030101
  5. RAMIPRIL [Concomitant]
     Indication: HYPERTENSION
     Route: 048
     Dates: start: 20000101

REACTIONS (3)
  - DRUG INTERACTION [None]
  - OVERDOSE [None]
  - TACHYCARDIA [None]
